FAERS Safety Report 5678996-X (Version None)
Quarter: 2008Q1

REPORT INFORMATION
  Report Type: 
  Country: None (occurrence: None)
  Receive Date: 20080325
  Receipt Date: 20080318
  Transmission Date: 20080703
  Serious: Yes (Other)
  Sender: FDA-Public Use
  Company Number: A0716194A

PATIENT
  Age: 31 Year
  Sex: Male

DRUGS (4)
  1. COMBIVIR [Suspect]
     Indication: ANTIVIRAL PROPHYLAXIS
     Dosage: 1TAB TWICE PER DAY
     Route: 048
     Dates: start: 20080315
  2. PROTEIN POWDER [Concomitant]
  3. MILK THISTLE [Concomitant]
  4. NELFINAVIR [Concomitant]

REACTIONS (3)
  - BLOOD LACTIC ACID INCREASED [None]
  - HEPATIC ENZYME INCREASED [None]
  - MUSCLE SPASMS [None]
